FAERS Safety Report 7578106-8 (Version None)
Quarter: 2011Q2

REPORT INFORMATION
  Report Type: 
  Country: None (occurrence: None)
  Receive Date: 20110621
  Receipt Date: 20110612
  Transmission Date: 20111010
  Serious: Yes (Hospitalization)
  Sender: FDA-Public Use
  Company Number: AXC-2011-000245

PATIENT
  Age: 79 Year
  Sex: Male

DRUGS (5)
  1. URSODIOL [Suspect]
     Indication: CHRONIC HEPATITIS
     Dosage: 600 MG, QD, ORAL ; 600 MG, QD, ORAL
     Route: 048
     Dates: start: 20090101, end: 20110518
  2. URSODIOL [Suspect]
     Indication: CHRONIC HEPATITIS
     Dosage: 600 MG, QD, ORAL ; 600 MG, QD, ORAL
     Route: 048
     Dates: start: 20110630
  3. URIEF (SILODOSIN) [Concomitant]
  4. DIOVAN [Suspect]
     Indication: HYPERTENSION
     Dosage: 120 MG, QD, ORAL
     Route: 048
     Dates: start: 20090101, end: 20110518
  5. VOGLIBOSE (VOGILBOSE) [Concomitant]

REACTIONS (1)
  - PNEUMONIA [None]
